FAERS Safety Report 7805662-4 (Version None)
Quarter: 2011Q4

REPORT INFORMATION
  Report Type: 
  Country: None (occurrence: None)
  Receive Date: 20111011
  Receipt Date: 20110927
  Transmission Date: 20120403
  Serious: Yes (Hospitalization)
  Sender: FDA-Public Use
  Company Number: DE-AMGEN-DEUSP2011041612

PATIENT
  Age: 9 Year
  Sex: Female
  Weight: 32 kg

DRUGS (3)
  1. INDOMETHACIN [Concomitant]
     Dosage: 25 MG, 3X/DAY
     Route: 048
  2. ENBREL [Suspect]
     Indication: JUVENILE ARTHRITIS
     Dosage: 25 MG, WEEKLY
     Route: 065
  3. ENBREL [Suspect]
     Dosage: 25 MG, WEEKLY
     Route: 058
     Dates: start: 20110729

REACTIONS (9)
  - HEADACHE [None]
  - GAIT DISTURBANCE [None]
  - DIZZINESS [None]
  - EYE PAIN [None]
  - DIPLOPIA [None]
  - NAUSEA [None]
  - INJECTION SITE PAIN [None]
  - MALAISE [None]
  - BALANCE DISORDER [None]
